FAERS Safety Report 6068363-1 (Version None)
Quarter: 2009Q1

REPORT INFORMATION
  Report Type: 
  Country: None (occurrence: None)
  Receive Date: 20090206
  Receipt Date: 20090128
  Transmission Date: 20090719
  Serious: Yes (Life-Threatening, Hospitalization)
  Sender: FDA-Public Use
  Company Number: FR-WYE-G03012709

PATIENT
  Sex: Female

DRUGS (14)
  1. EFFEXOR [Suspect]
     Indication: MAJOR DEPRESSION
     Route: 048
  2. MANTADIX [Concomitant]
     Route: 048
     Dates: start: 20070301, end: 20070515
  3. ARANESP [Concomitant]
     Indication: ANAEMIA
     Dosage: 300 UG TOTAL WEEKLY
     Route: 058
     Dates: start: 20070301, end: 20070515
  4. NEUPOGEN [Concomitant]
     Indication: NEUTROPENIA
     Route: 058
     Dates: start: 20070301, end: 20070515
  5. CORTANCYL [Concomitant]
     Indication: VASCULITIS
     Dosage: UNKNOWN
     Route: 048
     Dates: start: 20061001
  6. DAONIL [Concomitant]
     Indication: TYPE 2 DIABETES MELLITUS
     Route: 048
     Dates: start: 20070510
  7. ACTONEL [Concomitant]
     Indication: OSTEOPOROSIS
     Route: 048
     Dates: end: 20070701
  8. TRIATEC [Concomitant]
     Indication: HYPERTENSION
     Dosage: UNKNOWN
     Route: 048
  9. ATARAX [Concomitant]
     Indication: ANXIETY
     Route: 048
  10. BUSPAR [Concomitant]
     Indication: ANXIETY
     Route: 048
  11. RIVOTRIL [Concomitant]
     Route: 048
     Dates: start: 20070301
  12. FOSAMAX [Concomitant]
     Indication: OSTEOPOROSIS
     Route: 048
     Dates: start: 20070701
  13. PEGASYS [Suspect]
     Indication: HEPATITIS C
     Dosage: 180 MG TOTAL WEEKLY
     Route: 058
     Dates: start: 20070301, end: 20070515
  14. CACIT VITAMINE D3 [Concomitant]
     Indication: MINERAL SUPPLEMENTATION
     Route: 048

REACTIONS (6)
  - CONVULSION [None]
  - DEPRESSED LEVEL OF CONSCIOUSNESS [None]
  - ENCEPHALITIS [None]
  - GENERAL PHYSICAL HEALTH DETERIORATION [None]
  - HEMIPARESIS [None]
  - PLATELET COUNT DECREASED [None]
